FAERS Safety Report 22173657 (Version 2)
Quarter: 2023Q2

REPORT INFORMATION
  Report Type: Spontaneous
  Country: US (occurrence: US)
  Receive Date: 20230404
  Receipt Date: 20230504
  Transmission Date: 20230721
  Serious: No
  Sender: FDA-Public Use
  Company Number: US-SA-SAC20230404000274

PATIENT
  Age: 16 Year
  Sex: Male

DRUGS (22)
  1. DUPIXENT [Suspect]
     Active Substance: DUPILUMAB
     Indication: Dermatitis atopic
     Dosage: 300 MG, QOW
     Route: 058
     Dates: start: 20210624
  2. ADVAIR HFA [Concomitant]
     Active Substance: FLUTICASONE PROPIONATE\SALMETEROL XINAFOATE
     Dosage: UNK
  3. AZELASTINE [Concomitant]
     Active Substance: AZELASTINE
  4. CETIRIZINE [Concomitant]
     Active Substance: CETIRIZINE HYDROCHLORIDE
     Dosage: UNK
  5. CLOTRIMAZOLE [Concomitant]
     Active Substance: CLOTRIMAZOLE
     Dosage: UNK
  6. CROMOLYN SODIUM [Concomitant]
     Active Substance: CROMOLYN SODIUM
  7. DERMA-SMOOTHE/FS [Concomitant]
     Active Substance: FLUOCINOLONE ACETONIDE
     Dosage: UNK
  8. CYCLOSPORINE [Concomitant]
     Active Substance: CYCLOSPORINE
  9. EUCRISA [Concomitant]
     Active Substance: CRISABOROLE
     Dosage: UNK
  10. FLUCONAZOLE [Concomitant]
     Active Substance: FLUCONAZOLE
  11. GENGRAF [Concomitant]
     Active Substance: CYCLOSPORINE
  12. MOMETASONE [Concomitant]
     Active Substance: MOMETASONE
     Dosage: UNK
  13. NASONEX [Concomitant]
     Active Substance: MOMETASONE FUROATE
     Dosage: UNK
  14. OLOPATADINE [Concomitant]
     Active Substance: OLOPATADINE
     Dosage: UNK
  15. PAZEO [Concomitant]
     Active Substance: OLOPATADINE HYDROCHLORIDE
  16. PREDNISONE [Concomitant]
     Active Substance: PREDNISONE
  17. TACROLIMUS [Concomitant]
     Active Substance: TACROLIMUS
  18. TERBINAFINE [Concomitant]
     Active Substance: TERBINAFINE
  19. HYDROXYZINE HYDROCHLORIDE [Concomitant]
     Active Substance: HYDROXYZINE HYDROCHLORIDE
  20. HYDROXYZINE HYDROCHLORIDE [Concomitant]
     Active Substance: HYDROXYZINE HYDROCHLORIDE
  21. PREDNISOLONE [Concomitant]
     Active Substance: PREDNISOLONE
  22. PREDNISONE [Concomitant]
     Active Substance: PREDNISONE

REACTIONS (8)
  - Infection [Unknown]
  - Sleep disorder [Unknown]
  - Fatigue [Unknown]
  - Oropharyngeal pain [Unknown]
  - Eye irritation [Unknown]
  - Dermatitis atopic [Unknown]
  - Therapeutic product effect incomplete [Unknown]
  - Arthralgia [Unknown]
